FAERS Safety Report 5985266-9 (Version None)
Quarter: 2008Q4

REPORT INFORMATION
  Report Type: 
  Country: None (occurrence: None)
  Receive Date: 20081203
  Receipt Date: 20081120
  Transmission Date: 20090506
  Serious: Yes (Hospitalization)
  Sender: FDA-Public Use
  Company Number: MEDI-0007519

PATIENT
  Age: 3 Month
  Sex: Male
  Weight: 4.47 kg

DRUGS (3)
  1. SYNAGIS [Suspect]
     Indication: ANTIVIRAL PROPHYLAXIS
     Dosage: 50 MG, 1 IN 1 M, INTRAMUSCULAR
     Route: 030
     Dates: start: 20081106, end: 20081106
  2. FER-IN-SOL (FERROUS SULFATE) [Concomitant]
  3. POLY-VI-SOL (ERGOCALCIFEROL, ASCORBIC ACID, THIAMINE, RETINOL, RIBOFLA [Concomitant]

REACTIONS (11)
  - DEHYDRATION [None]
  - HYPERSENSITIVITY [None]
  - LUNG INFILTRATION [None]
  - RASH ERYTHEMATOUS [None]
  - RESPIRATORY DISTRESS [None]
  - SEPSIS [None]
  - STAPHYLOCOCCAL SCALDED SKIN SYNDROME [None]
  - STRIDOR [None]
  - TACHYCARDIA [None]
  - VIRAL INFECTION [None]
  - WHEEZING [None]
